FAERS Safety Report 5618808-3 (Version None)
Quarter: 2008Q1

REPORT INFORMATION
  Report Type: 
  Country: None (occurrence: None)
  Receive Date: 20080207
  Receipt Date: 20080128
  Transmission Date: 20080703
  Serious: Yes (Other)
  Sender: FDA-Public Use
  Company Number: US-PFIZER INC-2008009538

PATIENT
  Sex: Male
  Weight: 104.3 kg

DRUGS (3)
  1. LYRICA [Suspect]
     Indication: CONVULSION
  2. VICOPROFEN [Suspect]
     Indication: ARTHROPATHY
     Dosage: TEXT:7.5/200 MILLIGRAMS
     Dates: start: 20080123, end: 20080125
  3. ZOLOFT [Concomitant]

REACTIONS (8)
  - ADVERSE DRUG REACTION [None]
  - ANGER [None]
  - DYSKINESIA [None]
  - FEAR [None]
  - FEELING ABNORMAL [None]
  - MALAISE [None]
  - MENISCUS LESION [None]
  - TREMOR [None]
